FAERS Safety Report 7027271-X (Version None)
Quarter: 2010Q4

REPORT INFORMATION
  Report Type: 
  Country: None (occurrence: None)
  Receive Date: 20101004
  Receipt Date: 20100108
  Transmission Date: 20110411
  Serious: Yes (Hospitalization)
  Sender: FDA-Public Use
  Company Number: JP-SANOFI-AVENTIS-200912075JP

PATIENT
  Sex: Male
  Weight: 68 kg

DRUGS (5)
  1. INSULIN GLARGINE [Suspect]
     Dosage: DOSE AS USED: 4 UNITS
     Route: 058
     Dates: start: 20080712, end: 20081208
  2. OPTICLICK [Suspect]
  3. METFORMIN HYDROCHLORIDE [Suspect]
     Dosage: DOSE AS USED: 250 MG
     Route: 048
     Dates: end: 20081208
  4. BASEN [Suspect]
     Dosage: DOSE AS USED: 0.3 MG
     Route: 048
     Dates: end: 20081208
  5. OTHER UROLOGICALS, INCL ANTISPASMODICS [Concomitant]
     Dosage: DOSE AS USED: 2 MG
     Route: 048
     Dates: end: 20081208

REACTIONS (3)
  - CONDITION AGGRAVATED [None]
  - DECREASED APPETITE [None]
  - PARKINSON'S DISEASE [None]
